FAERS Safety Report 8979706 (Version 1)
Quarter: 2012Q4

REPORT INFORMATION
  Report Type: 
  Country: TR (occurrence: TR)
  Receive Date: 20121221
  Receipt Date: 20121221
  Transmission Date: 20130627
  Serious: Yes (Other)
  Sender: FDA-Public Use
  Company Number: TR-BAYER-2012-134360

PATIENT

DRUGS (1)
  1. NIFEDIPINE [Suspect]
     Route: 064

REACTIONS (4)
  - Foetal distress syndrome [None]
  - Premature baby [None]
  - Exposure during pregnancy [None]
  - Off label use [None]
